FAERS Safety Report 24072424 (Version 3)
Quarter: 2024Q3

REPORT INFORMATION
  Report Type: Spontaneous
  Country: US (occurrence: US)
  Receive Date: 20240710
  Receipt Date: 20240715
  Transmission Date: 20241016
  Serious: No
  Sender: NOVARTIS
  Company Number: US-002147023-NVSC2024US142282

PATIENT

DRUGS (1)
  1. COSENTYX [Suspect]
     Active Substance: SECUKINUMAB
     Indication: Product used for unknown indication
     Dosage: 150 MILLIGRAM PER MILLILITRE (1/BOX)
     Route: 065

REACTIONS (4)
  - Accidental exposure to product [Unknown]
  - Device leakage [Unknown]
  - Device malfunction [Unknown]
  - Exposure via skin contact [Unknown]
